FAERS Safety Report 4295179-9 (Version None)
Quarter: 2004Q1

REPORT INFORMATION
  Report Type: 
  Country: None (occurrence: None)
  Receive Date: 20040211
  Receipt Date: 20040122
  Transmission Date: 20041129
  Serious: Yes (Hospitalization)
  Sender: FDA-Public Use
  Company Number: A06200400018

PATIENT
  Age: 82 Year
  Sex: Male

DRUGS (3)
  1. XATRAL - (ALFUZOSIN) [Suspect]
     Dosage: 2.5 MG OD, ORAL
     Route: 048
     Dates: start: 20031120
  2. NORVASC [Concomitant]
  3. FOSICOMBI (HYDROCHLOROTHIAZIDE/FOSINOPRIL) [Concomitant]

REACTIONS (1)
  - PRURITUS [None]
